FAERS Safety Report 8098493-4 (Version None)
Quarter: 2012Q1

REPORT INFORMATION
  Report Type: 
  Country: None (occurrence: None)
  Receive Date: 20120129
  Receipt Date: 20110913
  Transmission Date: 20120608
  Serious: No
  Sender: FDA-Public Use
  Company Number: US-ABBOTT-11P-163-0854748-00

PATIENT
  Sex: Female

DRUGS (3)
  1. HUMIRA [Suspect]
     Dosage: 1 INJECTION, EVERY TWO WEEKS
     Route: 058
  2. HUMIRA [Suspect]
     Dosage: 1 INJECTION, WEEK 2
     Route: 058
  3. HUMIRA [Suspect]
     Indication: PRODUCT USED FOR UNKNOWN INDICATION
     Dosage: 2 INJECTIONS, WEEK 1
     Route: 058

REACTIONS (1)
  - INJECTION SITE HAEMATOMA [None]
